FAERS Safety Report 16810440 (Version 1)
Quarter: 2019Q4

REPORT INFORMATION
  Report Type: Spontaneous
  Country: US (occurrence: US)
  Receive Date: 20190916
  Receipt Date: 20190916
  Transmission Date: 20200122
  Serious: Yes (Disabling)
  Sender: FDA-Public Use
  Company Number: None

PATIENT
  Age: 7 Year
  Sex: Male
  Weight: 40.95 kg

DRUGS (8)
  1. LITTLE CRITTERS(MULTIVTAMINS + FIBER GUMMIES) [Concomitant]
  2. NATURAL VITALITY CALM GUMMIES [Concomitant]
  3. CLARITIN [Concomitant]
     Active Substance: LORATADINE
  4. DHA [Concomitant]
     Active Substance: DIETARY SUPPLEMENT
  5. SINGULAIR [Concomitant]
     Active Substance: MONTELUKAST SODIUM
  6. ALA GUMMIES [Concomitant]
  7. MIRALAX [Suspect]
     Active Substance: POLYETHYLENE GLYCOL 3350
     Indication: CONSTIPATION
     Dosage: ?          QUANTITY:1 CAPFUL 17 GRAMS;?
     Route: 048
     Dates: start: 20190909, end: 20190912
  8. KIDS^ OMEGA-3 EPA [Concomitant]

REACTIONS (2)
  - Tic [None]
  - Corneal reflex decreased [None]

NARRATIVE: CASE EVENT DATE: 20190910
